FAERS Safety Report 4470016-8 (Version None)
Quarter: 2004Q3

REPORT INFORMATION
  Report Type: 
  Country: None (occurrence: None)
  Receive Date: 20040920
  Receipt Date: 20040617
  Transmission Date: 20050211
  Serious: No
  Sender: FDA-Public Use
  Company Number: PHEH2004US06695

PATIENT
  Age: 75 Year
  Sex: Female
  Weight: 64.9 kg

DRUGS (2)
  1. ZOMETA [Suspect]
     Indication: BREAST CANCER METASTATIC
     Dosage: 4 MG EVERY 3 WEEKS, INTRAVENOUS
     Route: 042
     Dates: start: 20030717, end: 20040603
  2. FASLODEX [Concomitant]

REACTIONS (1)
  - CHEST PAIN [None]
